FAERS Safety Report 25363708 (Version 1)
Quarter: 2025Q2

REPORT INFORMATION
  Report Type: Spontaneous
  Country: US (occurrence: US)
  Receive Date: 20250527
  Receipt Date: 20250527
  Transmission Date: 20250717
  Serious: No
  Sender: MAYNE
  Company Number: US-MAYNE PHARMA-2025MYN000144

PATIENT

DRUGS (1)
  1. DORYX [Suspect]
     Active Substance: DOXYCYCLINE HYCLATE
     Indication: Acne
     Route: 065

REACTIONS (1)
  - Diarrhoea [Not Recovered/Not Resolved]
